FAERS Safety Report 8138283-7 (Version None)
Quarter: 2012Q1

REPORT INFORMATION
  Report Type: 
  Country: None (occurrence: None)
  Receive Date: 20120213
  Receipt Date: 20120201
  Transmission Date: 20120608
  Serious: Yes (Other)
  Sender: FDA-Public Use
  Company Number: A0965052A

PATIENT
  Age: 47 Year
  Sex: Male

DRUGS (9)
  1. CYCLOPHOSPHAMIDE [Suspect]
     Indication: B-CELL LYMPHOMA
  2. RITUXIMAB (FORMULATION UNKNOWN) (GENERIC) (RITUXIMAB) [Suspect]
     Indication: HIV TEST POSITIVE
  3. LAMIVUDINE [Suspect]
     Indication: HIV TEST POSITIVE
  4. PREDNISOLONE [Suspect]
     Indication: B-CELL LYMPHOMA
  5. TENOFOVIR DISOPROXIL FUMARATE [Suspect]
     Indication: HIV TEST POSITIVE
  6. DOXORUBICIN HCL [Suspect]
     Indication: HIV TEST POSITIVE
  7. FILGRASTIM (FORMULATION UNKNOWN) (GENERIC) (FILGRASTIM) [Suspect]
     Indication: FEBRILE NEUTROPENIA
  8. EFAVIRENZ [Suspect]
     Indication: HIV TEST POSITIVE
  9. VINCRISTINE [Suspect]
     Indication: B-CELL LYMPHOMA

REACTIONS (7)
  - PYREXIA [None]
  - BONE MARROW DISORDER [None]
  - NEUTROPHIL MORPHOLOGY ABNORMAL [None]
  - PANCYTOPENIA [None]
  - MEGAKARYOCYTES INCREASED [None]
  - SHIFT TO THE LEFT [None]
  - HAEMOGLOBIN DECREASED [None]
